FAERS Safety Report 6671470-3 (Version None)
Quarter: 2010Q2

REPORT INFORMATION
  Report Type: 
  Country: None (occurrence: None)
  Receive Date: 20100406
  Receipt Date: 20100406
  Transmission Date: 20101027
  Serious: Yes (Disabling)
  Sender: FDA-Public Use
  Company Number: None

PATIENT
  Age: 65 Year
  Sex: Female
  Weight: 54.5 kg

DRUGS (1)
  1. ASTEPRO [Suspect]
     Indication: NASAL CONGESTION
     Dosage: ONE SPRAY IN EACH NOSTRIL ONCE ONE SPRAY IN EACH NOSTRIL
     Route: 045
     Dates: start: 20100221

REACTIONS (4)
  - EYE DISORDER [None]
  - NASAL DISCOMFORT [None]
  - PRODUCT QUALITY ISSUE [None]
  - SKIN DISORDER [None]
